FAERS Safety Report 6296254-X (Version None)
Quarter: 2009Q3

REPORT INFORMATION
  Report Type: 
  Country: None (occurrence: None)
  Receive Date: 20090804
  Receipt Date: 20090728
  Transmission Date: 20100115
  Serious: Yes (Hospitalization)
  Sender: FDA-Public Use
  Company Number: JP-WYE-H09819809

PATIENT
  Sex: Male

DRUGS (8)
  1. ZOSYN [Suspect]
     Indication: PROCTITIS
     Route: 042
     Dates: start: 20090609, end: 20090614
  2. NEOLAMIN [Concomitant]
     Indication: DRUG USE FOR UNKNOWN INDICATION
     Route: 041
     Dates: start: 20090609
  3. STRONG NEO-MINOPHAGEN C [Concomitant]
     Indication: DRUG USE FOR UNKNOWN INDICATION
     Route: 041
     Dates: start: 20090611
  4. LASIX [Concomitant]
     Indication: DRUG USE FOR UNKNOWN INDICATION
     Route: 041
     Dates: start: 20090612
  5. PANTOL [Concomitant]
     Indication: DRUG USE FOR UNKNOWN INDICATION
     Route: 041
     Dates: start: 20090613
  6. OMEPRAL [Suspect]
     Indication: GASTRIC ULCER
     Route: 042
     Dates: start: 20090610, end: 20090615
  7. OMEPRAL [Suspect]
     Indication: PROPHYLAXIS
  8. ALBUMINAR [Concomitant]
     Indication: DRUG USE FOR UNKNOWN INDICATION
     Route: 041
     Dates: start: 20090610

REACTIONS (4)
  - DISSEMINATED INTRAVASCULAR COAGULATION [None]
  - HAEMATURIA [None]
  - PURPURA [None]
  - RENAL FAILURE [None]
